FAERS Safety Report 7684315 (Version 4)
Quarter: 2013Q3

REPORT INFORMATION
  Report Type: Report from Study
  Country: JP (occurrence: JP)
  Receive Date: 20101129
  Receipt Date: 20130909
  Transmission Date: 20140515
  Serious: Yes (Death, Other)
  Sender: FDA-Public Use
  Company Number: JP-GENZYME-THYM-1002010

PATIENT
  Age: 55 Year
  Sex: Male
  Weight: 75 kg

DRUGS (36)
  1. THYMOGLOBULINE [Suspect]
     Indication: APLASTIC ANAEMIA
     Dosage: 175 MG, QD
     Route: 042
     Dates: start: 20090401, end: 20090405
  2. FUROSEMIDE [Suspect]
     Indication: RENAL IMPAIRMENT
     Dosage: UNK
     Route: 065
     Dates: start: 20090414, end: 20090501
  3. FUROSEMIDE [Suspect]
     Indication: FACE OEDEMA
     Dosage: UNK
     Route: 065
     Dates: start: 20090803, end: 20090819
  4. FUROSEMIDE [Suspect]
     Indication: OEDEMA PERIPHERAL
  5. DEFERASIROX [Concomitant]
     Indication: APLASTIC ANAEMIA
     Dosage: UNK
     Route: 065
     Dates: start: 20090325, end: 20090918
  6. DEFERASIROX [Concomitant]
     Indication: IRON OVERLOAD
  7. SPIRONOLACTONE [Concomitant]
     Indication: PROPHYLAXIS
     Dosage: UNK
     Route: 065
     Dates: start: 20090821, end: 20090827
  8. METHYLPREDNISOLONE SODIUM SUCCINATE [Concomitant]
     Indication: PREMEDICATION
     Dosage: UNK
     Route: 065
     Dates: start: 20090401, end: 20090405
  9. ENTECAVIR [Concomitant]
     Indication: ANTIVIRAL PROPHYLAXIS
     Dosage: UNK
     Route: 065
     Dates: start: 20090331, end: 20090402
  10. ENTECAVIR [Concomitant]
     Indication: APLASTIC ANAEMIA
     Dosage: UNK
     Route: 065
     Dates: start: 2009, end: 200909
  11. DEXCHLORPHENIRAMINE MALEATE [Concomitant]
     Indication: PREMEDICATION
     Dosage: UNK
     Route: 065
     Dates: start: 20090401, end: 20090401
  12. TEPRENONE [Concomitant]
     Indication: APLASTIC ANAEMIA
     Dosage: UNK
     Route: 065
     Dates: start: 20090405, end: 20090918
  13. TEPRENONE [Concomitant]
     Indication: PROPHYLAXIS
  14. FILGRASTIM [Concomitant]
     Indication: APLASTIC ANAEMIA
     Dosage: UNK
     Route: 065
     Dates: start: 20090406, end: 20090408
  15. FILGRASTIM [Concomitant]
     Dosage: UNK
     Route: 065
     Dates: start: 20090526, end: 20090616
  16. FILGRASTIM [Concomitant]
     Dosage: UNK
     Route: 065
     Dates: start: 20090721, end: 20090805
  17. FILGRASTIM [Concomitant]
     Dosage: UNK
     Route: 065
     Dates: start: 20090825, end: 20090922
  18. MICAFUNGIN SODIUM [Concomitant]
     Indication: INFECTION PROPHYLAXIS
     Dosage: UNK
     Route: 065
     Dates: start: 20090512, end: 20090522
  19. CEFEPIME HYDROCHLORIDE [Concomitant]
     Indication: INFECTION PROPHYLAXIS
     Dosage: UNK
     Route: 065
     Dates: start: 20090430, end: 20090502
  20. PIPERACILLIN W [Concomitant]
     Indication: INFECTION PROPHYLAXIS
     Dosage: UNK
     Route: 065
     Dates: start: 20090513, end: 20090526
  21. MEROPENEM TRIHYDRATE [Concomitant]
     Indication: INFECTION PROPHYLAXIS
     Dosage: UNK
     Route: 065
     Dates: start: 20090502, end: 20090511
  22. BIAPENEM [Concomitant]
     Indication: PROPHYLAXIS
     Dosage: UNK
     Route: 065
     Dates: start: 20090610, end: 20090623
  23. BIAPENEM [Concomitant]
     Dosage: UNK
     Route: 065
     Dates: start: 20090724, end: 20090806
  24. BIAPENEM [Concomitant]
     Dosage: UNK
     Route: 065
     Dates: start: 20090911, end: 20090921
  25. CEFOZOPRAN HYDROCHLORIDE [Concomitant]
     Indication: PROPHYLAXIS
     Dosage: UNK
     Route: 065
     Dates: start: 20090626, end: 20090709
  26. CEFOZOPRAN HYDROCHLORIDE [Concomitant]
     Dosage: UNK
     Route: 065
     Dates: start: 20090807, end: 20090820
  27. AMINO ACIDS [Concomitant]
     Indication: APLASTIC ANAEMIA
     Dosage: UNK
     Route: 065
     Dates: start: 20090731, end: 20090804
  28. FUROSEMIDE [Concomitant]
     Indication: PROPHYLAXIS
     Dosage: UNK
     Route: 065
     Dates: start: 20090821, end: 20090827
  29. PEPSIN TREATED HUMAN IMMUNOGLOBULIN [Concomitant]
     Indication: APLASTIC ANAEMIA
     Dosage: UNK
     Route: 065
     Dates: start: 20090704, end: 20090706
  30. SULBACTAM SODIUM CEFOPERAZONE SODIUM [Concomitant]
     Indication: PROPHYLAXIS
     Dosage: UNK
     Route: 065
     Dates: start: 20090826, end: 20090908
  31. ARBEKACIN SULFATE [Concomitant]
     Indication: PROPHYLAXIS
     Dosage: UNK
     Route: 065
     Dates: start: 20090912, end: 20090922
  32. FLUCONAZOLE [Concomitant]
     Indication: PROPHYLAXIS
     Dosage: UNK
     Route: 065
     Dates: start: 20090408, end: 20090921
  33. RABEPRAZOLE SODIUM [Concomitant]
     Indication: PROPHYLAXIS
     Dosage: UNK
     Route: 065
     Dates: start: 20090410, end: 20090921
  34. PREDNISOLONE [Concomitant]
     Indication: APLASTIC ANAEMIA
     Dosage: UNK
     Route: 065
     Dates: start: 20090408, end: 20090421
  35. SULFAMETHOPRIM [Concomitant]
     Indication: PROPHYLAXIS
     Dosage: UNK
     Route: 065
     Dates: start: 20090408, end: 20090921
  36. ITRACONAZOLE [Concomitant]
     Indication: PROPHYLAXIS
     Dosage: UNK
     Route: 065
     Dates: start: 2009, end: 20090715

REACTIONS (14)
  - Aplastic anaemia [Fatal]
  - Atrial fibrillation [Recovered/Resolved]
  - Cytomegalovirus infection [Fatal]
  - Arrhythmia [Recovered/Resolved]
  - Renal impairment [Recovered/Resolved]
  - Hypokalaemia [Recovered/Resolved]
  - Blood calcium decreased [Recovered/Resolved]
  - Face oedema [Recovered/Resolved]
  - Respiratory disorder [Unknown]
  - Palpitations [Unknown]
  - Oedema peripheral [Recovered/Resolved]
  - Abdominal pain upper [Recovered/Resolved]
  - Pyrexia [Recovered/Resolved]
  - Therapeutic response decreased [Unknown]
